FAERS Safety Report 8178709-6 (Version None)
Quarter: 2012Q1

REPORT INFORMATION
  Report Type: 
  Country: None (occurrence: None)
  Receive Date: 20120301
  Receipt Date: 20120221
  Transmission Date: 20120608
  Serious: Yes (Hospitalization)
  Sender: FDA-Public Use
  Company Number: AU-ASTRAZENECA-2012SE12500

PATIENT
  Age: 99 Year
  Sex: Female

DRUGS (6)
  1. NEXIUM [Suspect]
     Indication: HYPERCHLORHYDRIA
     Route: 048
  2. NEXIUM [Suspect]
     Route: 048
  3. NEXIUM [Suspect]
     Route: 048
  4. NEXIUM [Suspect]
     Indication: ABDOMINAL DISTENSION
     Route: 048
  5. PANADINE FORTE [Concomitant]
  6. CODEINE PHOSPHATE [Concomitant]

REACTIONS (12)
  - AGITATION [None]
  - ACTIVITIES OF DAILY LIVING IMPAIRED [None]
  - DIZZINESS [None]
  - NAUSEA [None]
  - LETHARGY [None]
  - FEELING ABNORMAL [None]
  - DRY SKIN [None]
  - TONGUE DISCOLOURATION [None]
  - WEIGHT DECREASED [None]
  - DECREASED APPETITE [None]
  - ASTHENIA [None]
  - ABDOMINAL PAIN UPPER [None]
